FAERS Safety Report 24062222 (Version 3)
Quarter: 2024Q3

REPORT INFORMATION
  Report Type: Spontaneous
  Country: JP (occurrence: JP)
  Receive Date: 20240708
  Receipt Date: 20240812
  Transmission Date: 20241017
  Serious: No
  Sender: CARA THERAPEUTICS
  Company Number: JP-CARA THERAPEUTICS, INC.-2024-00328-JP

PATIENT
  Age: 92 Year
  Sex: Male

DRUGS (7)
  1. KORSUVA [Suspect]
     Active Substance: DIFELIKEFALIN ACETATE
     Indication: Pruritus
     Dosage: 25 ?G/
     Route: 042
     Dates: end: 20240629
  2. VONOPRAZAN FUMARATE [Concomitant]
     Active Substance: VONOPRAZAN FUMARATE
  3. TENELIGLIPTIN [Concomitant]
     Active Substance: TENELIGLIPTIN
  4. AMIYU [AMINO ACIDS NOS] [Concomitant]
  5. ALFACALCIDOL [Concomitant]
     Active Substance: ALFACALCIDOL
  6. GENTAMICIN [Concomitant]
     Active Substance: GENTAMICIN
  7. DIPHENHYDRAMINE [Concomitant]
     Active Substance: DIPHENHYDRAMINE

REACTIONS (1)
  - Epilepsy [Recovered/Resolved]

NARRATIVE: CASE EVENT DATE: 20240627
